FAERS Safety Report 9184730 (Version 2)
Quarter: 2013Q1

REPORT INFORMATION
  Report Type: Spontaneous
  Country: US (occurrence: US)
  Receive Date: 20130324
  Receipt Date: 20130327
  Transmission Date: 20140127
  Serious: Yes (Hospitalization)
  Sender: FDA-Public Use
  Company Number: PHEH2013US006607

PATIENT
  Sex: Female
  Weight: 66.7 kg

DRUGS (3)
  1. GILENYA [Suspect]
     Indication: MULTIPLE SCLEROSIS
     Dosage: 0.5 MG, QD
     Route: 048
     Dates: start: 20110810, end: 20130219
  2. MODAFINIL [Concomitant]
     Indication: FATIGUE
     Dosage: 100 MG, QD
     Route: 048
  3. NEBIVOLOL [Concomitant]
     Route: 048

REACTIONS (3)
  - Nephrolithiasis [Recovered/Resolved]
  - Flank pain [Unknown]
  - Pyrexia [Unknown]
